FAERS Safety Report 7152652-3 (Version None)
Quarter: 2010Q4

REPORT INFORMATION
  Report Type: 
  Country: None (occurrence: None)
  Receive Date: 20101213
  Receipt Date: 20101206
  Transmission Date: 20110411
  Serious: Yes (Other)
  Sender: FDA-Public Use
  Company Number: GB-BRISTOL-MYERS SQUIBB COMPANY-15227242

PATIENT
  Age: 74 Year

DRUGS (3)
  1. CETUXIMAB [Suspect]
     Indication: OESOPHAGEAL CARCINOMA
     Route: 042
     Dates: start: 20090615, end: 20090910
  2. CISPLATIN [Suspect]
     Indication: OESOPHAGEAL CARCINOMA
     Dosage: ALOS ON 27AUG2009
     Route: 042
     Dates: start: 20090615, end: 20090827
  3. CAPECITABINE [Suspect]
     Indication: OESOPHAGEAL CARCINOMA
     Dosage: 1DF=CYCLE 3 AT 75%, CYCLE 4 50%.CYCLE4 COMPLETED FORM=TABLETS LAST ADMIN:10SEP2009
     Route: 048
     Dates: start: 20090615

REACTIONS (1)
  - ODYNOPHAGIA [None]
